FAERS Safety Report 9189446 (Version 1)
Quarter: 2013Q1

REPORT INFORMATION
  Report Type: Spontaneous
  Country: US (occurrence: US)
  Receive Date: 20130326
  Receipt Date: 20130326
  Transmission Date: 20140127
  Serious: Yes (Other)
  Sender: FDA-Public Use
  Company Number: PHEH2013US006744

PATIENT
  Sex: Female

DRUGS (3)
  1. DIOVAN HCT [Suspect]
     Indication: HYPERTENSION
     Dosage: 1 DF(3220/12.5MG), QD
     Route: 048
  2. CLONIDINE [Concomitant]
     Dosage: UNK UKN, UNK
  3. POTASSIUM [Concomitant]
     Dosage: UNK UKN, UNK

REACTIONS (3)
  - Joint hyperextension [Recovering/Resolving]
  - Ligament rupture [Recovering/Resolving]
  - Meniscus injury [Recovering/Resolving]
